FAERS Safety Report 8919969 (Version 1)
Quarter: 2012Q4

REPORT INFORMATION
  Report Type: 
  Country: US (occurrence: US)
  Receive Date: 20121121
  Receipt Date: 20121121
  Transmission Date: 20130627
  Serious: No
  Sender: FDA-Public Use
  Company Number: US-BAYER-2012-121884

PATIENT
  Sex: Female

DRUGS (3)
  1. ALEVE CAPLET/TABLET,MIDOL EXTENDED RELIEF CAPLET [Suspect]
     Indication: ARTHRITIS
     Dosage: UNK DF, other frequency
     Route: 048
     Dates: start: 2011
  2. SEIZURE MEDICATION [Concomitant]
  3. PAIN RELIEF [Concomitant]
     Dosage: UNK

REACTIONS (1)
  - Drug ineffective [None]
